FAERS Safety Report 16570245 (Version 2)
Quarter: 2021Q4

REPORT INFORMATION
  Report Type: Spontaneous
  Country: CA (occurrence: CA)
  Receive Date: 20190715
  Receipt Date: 20211110
  Transmission Date: 20220303
  Serious: Yes (Hospitalization, Other)
  Sender: FDA-Public Use
  Company Number: CA-AUROBINDO-AUR-APL-2019-038941

PATIENT
  Age: 75 Year
  Sex: Female

DRUGS (3)
  1. ROSUVASTATIN [Suspect]
     Active Substance: ROSUVASTATIN
     Indication: Hyperlipidaemia
     Dosage: 40 MILLIGRAM, ONCE A DAY
     Route: 048
  2. BISOPROLOL [Concomitant]
     Active Substance: BISOPROLOL
     Indication: Product used for unknown indication
     Dosage: UNK
     Route: 065
  3. BRILINTA [Concomitant]
     Active Substance: TICAGRELOR
     Indication: Product used for unknown indication
     Dosage: UNK
     Route: 065

REACTIONS (7)
  - Renal failure [Recovering/Resolving]
  - Renal injury [Recovering/Resolving]
  - Rhabdomyolysis [Recovering/Resolving]
  - Blood urine present [Recovering/Resolving]
  - Gait inability [Recovering/Resolving]
  - Hospitalisation [Recovering/Resolving]
  - Muscular weakness [Recovering/Resolving]
